FAERS Safety Report 9076318 (Version 1)
Quarter: 2013Q1

REPORT INFORMATION
  Report Type: Report from Study
  Country: US (occurrence: US)
  Receive Date: 20130129
  Receipt Date: 20130129
  Transmission Date: 20140127
  Serious: No
  Sender: FDA-Public Use
  Company Number: US-ABBOTT-12P-163-0928237-00

PATIENT
  Age: 38 Year
  Sex: Female

DRUGS (11)
  1. HUMIRA 40 MG/0.8 ML PEN [Suspect]
     Indication: RHEUMATOID ARTHRITIS
     Dates: start: 20120222, end: 20120404
  2. METHOTREXATE [Concomitant]
     Indication: PRODUCT USED FOR UNKNOWN INDICATION
     Dosage: 8 TABS EVERY MONDAY
  3. METHOTREXATE [Concomitant]
     Dates: start: 20120516
  4. PREDNISONE [Concomitant]
     Indication: PRODUCT USED FOR UNKNOWN INDICATION
     Dosage: 5MG 3 TABS DAILY
  5. PREDNISONE [Concomitant]
     Dates: start: 20120516
  6. ZOFRAN [Concomitant]
     Indication: NAUSEA
  7. FOLIC ACID [Concomitant]
     Indication: PRODUCT USED FOR UNKNOWN INDICATION
     Dosage: DAILY
  8. MELOXICAM [Concomitant]
     Indication: CONSTIPATION PROPHYLAXIS
  9. MELOXICAM [Concomitant]
     Indication: CONSTIPATION
  10. FENTANYL [Concomitant]
     Indication: PRODUCT USED FOR UNKNOWN INDICATION
     Dosage: TRANSDERMAL PATCH
  11. WELLBUTRIN [Concomitant]
     Indication: NERVOUSNESS

REACTIONS (5)
  - Laboratory test abnormal [Not Recovered/Not Resolved]
  - Arthralgia [Not Recovered/Not Resolved]
  - Abnormal loss of weight [Not Recovered/Not Resolved]
  - Injection site pain [Not Recovered/Not Resolved]
  - Injection site bruising [Not Recovered/Not Resolved]
